FAERS Safety Report 8105167-X (Version None)
Quarter: 2012Q1

REPORT INFORMATION
  Report Type: 
  Country: None (occurrence: None)
  Receive Date: 20120201
  Receipt Date: 20120126
  Transmission Date: 20120608
  Serious: Yes (Hospitalization)
  Sender: FDA-Public Use
  Company Number: IE-AMGEN-IRLCT2012005389

PATIENT
  Age: 61 Year
  Sex: Female

DRUGS (8)
  1. FEXOFENADINE HCL [Concomitant]
     Dosage: 80 MG, QHS
     Route: 048
  2. BLINDED DENOSUMAB [Suspect]
     Indication: BREAST CANCER
     Dosage: UNK
     Route: 058
     Dates: start: 20110915
  3. TAXOL [Concomitant]
     Dosage: 295 UNK, UNK
     Route: 042
     Dates: start: 20111117
  4. ZYRTEC [Concomitant]
     Dosage: 10 MG, BID
     Route: 048
  5. CYCLOPHOSPHAMIDE [Concomitant]
     Dosage: UNK
     Route: 042
     Dates: start: 20110915, end: 20111117
  6. ANTIBIOTICS [Concomitant]
     Indication: BREAST INFECTION
     Route: 042
  7. BLINDED PLACEBO [Suspect]
     Indication: BREAST CANCER
     Dosage: UNK
     Route: 058
     Dates: start: 20110915
  8. DOCETAXEL [Concomitant]
     Dosage: UNK
     Route: 042
     Dates: start: 20110915, end: 20111027

REACTIONS (2)
  - RASH [None]
  - URTICARIA [None]
